FAERS Safety Report 9348695 (Version 1)
Quarter: 2013Q2

REPORT INFORMATION
  Report Type: Spontaneous
  Country: AU (occurrence: AU)
  Receive Date: 20130614
  Receipt Date: 20130614
  Transmission Date: 20140414
  Serious: Yes (Death)
  Sender: FDA-Public Use
  Company Number: AU-ROXANE LABORATORIES, INC.-2013-RO-00945RO

PATIENT
  Age: 81 Year
  Sex: Male

DRUGS (4)
  1. DIAZEPAM [Suspect]
  2. QUININE [Suspect]
  3. MOCLOBEMIDE [Suspect]
  4. FLUOXETINE [Suspect]

REACTIONS (2)
  - Asphyxia [Fatal]
  - Intentional self-injury [Fatal]
